FAERS Safety Report 5734975-5 (Version None)
Quarter: 2008Q2

REPORT INFORMATION
  Report Type: 
  Country: None (occurrence: None)
  Receive Date: 20080508
  Receipt Date: 20080508
  Transmission Date: 20081010
  Serious: Yes (Other)
  Sender: FDA-Public Use
  Company Number: None

PATIENT
  Sex: Male
  Weight: 72.5755 kg

DRUGS (1)
  1. DIGITEK   .125 MICROGRAMS  ACTAVIS TOTOWA LLC [Suspect]
     Indication: ATRIAL FIBRILLATION
     Dosage: ONE PILL DAILY OTIC
     Route: 001
     Dates: start: 20060120, end: 20080429

REACTIONS (2)
  - HYPERSENSITIVITY [None]
  - PHARMACEUTICAL PRODUCT COMPLAINT [None]
